FAERS Safety Report 10542553 (Version 1)
Quarter: 2014Q4

REPORT INFORMATION
  Report Type: Spontaneous
  Country: US (occurrence: None)
  Receive Date: 20141024
  Receipt Date: 20141024
  Transmission Date: 20150529
  Serious: Yes (Disabling)
  Sender: FDA-Public Use
  Company Number: None

PATIENT
  Age: 39 Year
  Sex: Female
  Weight: 97.52 kg

DRUGS (1)
  1. HCG [Suspect]
     Active Substance: GONADOTROPHIN, CHORIONIC
     Indication: WEIGHT DECREASED
     Dosage: 1 INJECTION, ONCE DAILY, GIVEN INTO/UNDER THE SKIN?

REACTIONS (1)
  - Irritable bowel syndrome [None]

NARRATIVE: CASE EVENT DATE: 20141006
